FAERS Safety Report 4971705-9 (Version None)
Quarter: 2006Q2

REPORT INFORMATION
  Report Type: 
  Country: None (occurrence: None)
  Receive Date: 20060413
  Receipt Date: 20051010
  Transmission Date: 20061013
  Serious: Yes (Death, Hospitalization)
  Sender: FDA-Public Use
  Company Number: PHFR2005GB03328

PATIENT
  Age: 21 Year
  Sex: Female

DRUGS (1)
  1. CARBAMAZEPINE [Suspect]
     Indication: MUSCLE SPASMS
     Dosage: 200MG/DAY
     Route: 048

REACTIONS (18)
  - ABDOMINAL DISCOMFORT [None]
  - CHILLS [None]
  - CONFUSIONAL STATE [None]
  - DIARRHOEA HAEMORRHAGIC [None]
  - DRUG RASH WITH EOSINOPHILIA AND SYSTEMIC SYMPTOMS [None]
  - DYSPNOEA [None]
  - ENCEPHALOPATHY [None]
  - HEPATIC FAILURE [None]
  - HEPATIC FUNCTION ABNORMAL [None]
  - HYPOGLYCAEMIA [None]
  - HYPOPERFUSION [None]
  - INFLAMMATION [None]
  - LACTIC ACIDOSIS [None]
  - PYREXIA [None]
  - RASH MACULAR [None]
  - RASH MORBILLIFORM [None]
  - SEPSIS [None]
  - SKIN EXFOLIATION [None]
